FAERS Safety Report 5143231-8 (Version None)
Quarter: 2006Q4

REPORT INFORMATION
  Report Type: 
  Country: None (occurrence: None)
  Receive Date: 20061031
  Receipt Date: 20061031
  Transmission Date: 20070319
  Serious: Yes (Other)
  Sender: FDA-Public Use
  Company Number: None

PATIENT
  Age: 30 Year
  Sex: Male
  Weight: 68.0396 kg

DRUGS (1)
  1. CITANEST [Suspect]
     Indication: DRUG TOXICITY
     Dosage: LOCAL ANESTHESIA
     Dates: start: 20060801

REACTIONS (2)
  - INFILTRATION ANAESTHESIA [None]
  - PARAESTHESIA ORAL [None]
